FAERS Safety Report 15353858 (Version 3)
Quarter: 2019Q3

REPORT INFORMATION
  Report Type: Report from Study
  Country: US (occurrence: US)
  Receive Date: 20180905
  Receipt Date: 20190829
  Transmission Date: 20191004
  Serious: No
  Sender: FDA-Public Use
  Company Number: PHEH2018US036868

PATIENT
  Age: 59 Year
  Sex: Female
  Weight: 75.74 kg

DRUGS (4)
  1. EFFEXOR [Concomitant]
     Active Substance: VENLAFAXINE HYDROCHLORIDE
     Indication: ANXIETY
     Dosage: 25 MG, UNK
     Route: 048
     Dates: start: 2017
  2. ENTRESTO [Suspect]
     Active Substance: SACUBITRIL\VALSARTAN
     Indication: CARDIAC FAILURE CONGESTIVE
     Dosage: 1 DF (SACUBITRIL 49 MG/ VALSARTAN 51 MG), UNK
     Route: 048
     Dates: start: 2018
  3. LIPITOR [Concomitant]
     Active Substance: ATORVASTATIN CALCIUM
     Indication: HYPERLIPIDAEMIA
     Dosage: 20 MG, UNK
     Route: 048
     Dates: start: 2018
  4. COREG [Concomitant]
     Active Substance: CARVEDILOL
     Indication: CARDIAC FAILURE CONGESTIVE
     Dosage: 12.5 MG, UNK
     Route: 048
     Dates: start: 2018

REACTIONS (5)
  - Chest pain [Unknown]
  - Dizziness [Unknown]
  - Hyperhidrosis [Unknown]
  - Dyspnoea [Unknown]
  - Rash [Recovered/Resolved]
